FAERS Safety Report 7428087-2 (Version None)
Quarter: 2011Q2

REPORT INFORMATION
  Report Type: 
  Country: None (occurrence: None)
  Receive Date: 20110421
  Receipt Date: 20110412
  Transmission Date: 20111010
  Serious: No
  Sender: FDA-Public Use
  Company Number: US-BIOGENIDEC-2010BI039389

PATIENT
  Sex: Female

DRUGS (1)
  1. TYSABRI [Suspect]
     Indication: MULTIPLE SCLEROSIS
     Route: 042
     Dates: start: 20100810

REACTIONS (9)
  - MOBILITY DECREASED [None]
  - FATIGUE [None]
  - APHASIA [None]
  - ASTHENIA [None]
  - GAIT DISTURBANCE [None]
  - TREMOR [None]
  - BIPOLAR DISORDER [None]
  - DEAFNESS [None]
  - DEHYDRATION [None]
